FAERS Safety Report 6124134-9 (Version None)
Quarter: 2009Q1

REPORT INFORMATION
  Report Type: 
  Country: None (occurrence: None)
  Receive Date: 20090319
  Receipt Date: 20090310
  Transmission Date: 20090719
  Serious: Yes (Death)
  Sender: FDA-Public Use
  Company Number: BG-ROCHE-432428

PATIENT
  Sex: Male
  Weight: 104 kg

DRUGS (3)
  1. CAPECITABINE [Suspect]
     Dosage: STRENGTH: 150 MG AND 500 MG
     Route: 048
     Dates: start: 20060111, end: 20060117
  2. BEVACIZUMAB [Suspect]
     Route: 042
     Dates: start: 20060111, end: 20060111
  3. OXALIPLATIN [Suspect]
     Dosage: FORM: INFUSION; STRENGTH: 50 MG AND 100 MG
     Route: 042
     Dates: start: 20060111, end: 20060111

REACTIONS (1)
  - RESPIRATORY FAILURE [None]
